FAERS Safety Report 19241098 (Version 1)
Quarter: 2021Q2

REPORT INFORMATION
  Report Type: Spontaneous
  Country: US (occurrence: US)
  Receive Date: 20210510
  Receipt Date: 20210510
  Transmission Date: 20210717
  Serious: No
  Sender: FDA-Public Use
  Company Number: None

PATIENT
  Age: 51 Year
  Sex: Female

DRUGS (1)
  1. OTEZLA [Suspect]
     Active Substance: APREMILAST
     Indication: PSORIASIS
     Dosage: AS  DIRECTED
     Route: 048
     Dates: start: 202002

REACTIONS (3)
  - Abdominal discomfort [None]
  - COVID-19 [None]
  - Therapy interrupted [None]
